FAERS Safety Report 9775211 (Version 1)
Quarter: 2013Q4

REPORT INFORMATION
  Report Type: Spontaneous
  Country: US (occurrence: US)
  Receive Date: 20131220
  Receipt Date: 20131220
  Transmission Date: 20140711
  Serious: No
  Sender: FDA-Public Use
  Company Number: US-GALDERMA-US13003037

PATIENT
  Age: 18 Year
  Sex: Female

DRUGS (2)
  1. MIRVASO (BRIMONIDINE) TOPICAL GEL, 0.33% [Suspect]
     Indication: ROSACEA
     Dosage: 0.33%
     Route: 061
     Dates: start: 20130920, end: 20130922
  2. BIRTH CONTROL PILL [Concomitant]
     Route: 048

REACTIONS (2)
  - Erythema [Recovered/Resolved]
  - Flushing [Recovered/Resolved]
